FAERS Safety Report 6085798-1 (Version None)
Quarter: 2009Q1

REPORT INFORMATION
  Report Type: 
  Country: None (occurrence: None)
  Receive Date: 20090217
  Receipt Date: 20090217
  Transmission Date: 20090719
  Serious: Yes (Life-Threatening)
  Sender: FDA-Public Use
  Company Number: None

PATIENT
  Age: 44 Year
  Sex: Female
  Weight: 69.8539 kg

DRUGS (1)
  1. BENZONATATE [Suspect]
     Indication: VIRAL UPPER RESPIRATORY TRACT INFECTION
     Dosage: 1 3 DAILY PO ONCE
     Route: 048
     Dates: start: 20090214, end: 20090214

REACTIONS (1)
  - NO ADVERSE EVENT [None]
